FAERS Safety Report 8893134 (Version 1)
Quarter: 2012Q4

REPORT INFORMATION
  Report Type: 
  Country: US (occurrence: US)
  Receive Date: 20121107
  Receipt Date: 20121107
  Transmission Date: 20130627
  Serious: No
  Sender: FDA-Public Use
  Company Number: US-AMGEN-USASP2011052551

PATIENT
  Age: 61 Year
  Sex: Female

DRUGS (10)
  1. ENBREL [Suspect]
     Indication: PRODUCT USED FOR UNKNOWN INDICATION
     Dosage: 50 mg, qwk
     Route: 058
  2. PLAQUENIL [Concomitant]
     Dosage: 200 mg, UNK
  3. METHOTREXATE [Concomitant]
     Dosage: 2.5 mg, UNK
  4. TRICOR [Concomitant]
     Dosage: 48 mg, UNK
  5. LEVOTHYROXIN [Concomitant]
     Dosage: 25 mug, UNK
  6. AMITRIPTYLIN [Concomitant]
     Dosage: 25 mg, UNK
  7. ALLERGY MEDICATION [Concomitant]
     Dosage: UNK
  8. VITAMIN D [Concomitant]
     Dosage: 1000 IU, UNK
  9. MULTIVITAMIN [Concomitant]
     Dosage: UNK
  10. FOLIC ACID [Concomitant]
     Dosage: 5 mg, UNK

REACTIONS (2)
  - Pruritus [Unknown]
  - Injection site bruising [Unknown]
